FAERS Safety Report 9351824 (Version 3)
Quarter: 2013Q3

REPORT INFORMATION
  Report Type: Spontaneous
  Country: JP (occurrence: JP)
  Receive Date: 20130617
  Receipt Date: 20130709
  Transmission Date: 20140515
  Serious: Yes (Other)
  Sender: FDA-Public Use
  Company Number: JP-OTSUKA-JP-2013-12216

PATIENT
  Age: 80 Year
  Sex: Male

DRUGS (3)
  1. SAMSCA [Suspect]
     Indication: CARDIAC FAILURE
     Dosage: 15 MG MILLIGRAM(S), DAILY DOSE
     Route: 048
     Dates: end: 20130606
  2. SERENACE [Concomitant]
     Indication: AGITATION
  3. LASIX [Concomitant]
     Dosage: 40 MG MILLIGRAM(S), DAILY DOSE
     Route: 065

REACTIONS (2)
  - Hypernatraemia [Recovered/Resolved]
  - Polyuria [Recovered/Resolved]
